FAERS Safety Report 13296200 (Version 1)
Quarter: 2017Q1

REPORT INFORMATION
  Report Type: Spontaneous
  Country: US (occurrence: US)
  Receive Date: 20170304
  Receipt Date: 20170304
  Transmission Date: 20170428
  Serious: No
  Sender: FDA-Public Use
  Company Number: US-ASTRAZENECA-2017SE22973

PATIENT
  Sex: Female
  Weight: 94.8 kg

DRUGS (5)
  1. SPIRIVA [Concomitant]
     Active Substance: TIOTROPIUM BROMIDE MONOHYDRATE
     Indication: CHRONIC OBSTRUCTIVE PULMONARY DISEASE
     Route: 055
  2. DALIRESP [Suspect]
     Active Substance: ROFLUMILAST
     Indication: CHRONIC OBSTRUCTIVE PULMONARY DISEASE
     Dosage: ONCE A DAY
     Route: 048
     Dates: start: 2016
  3. LASIX [Suspect]
     Active Substance: FUROSEMIDE
     Indication: DIURETIC THERAPY
     Route: 048
  4. KLOR-CON POTASSIUM [Concomitant]
     Indication: CELLULITIS
     Route: 048
  5. LASIX [Suspect]
     Active Substance: FUROSEMIDE
     Indication: CELLULITIS
     Route: 048

REACTIONS (5)
  - Dyspnoea [Unknown]
  - Pollakiuria [Unknown]
  - Energy increased [Unknown]
  - Drug dose omission [Unknown]
  - Weight decreased [Unknown]
